FAERS Safety Report 7879109-6 (Version None)
Quarter: 2011Q4

REPORT INFORMATION
  Report Type: 
  Country: None (occurrence: None)
  Receive Date: 20111101
  Receipt Date: 20111018
  Transmission Date: 20120403
  Serious: Yes (Other)
  Sender: FDA-Public Use
  Company Number: US-BAYER-2011-062433

PATIENT
  Age: 49 Year
  Sex: Female

DRUGS (13)
  1. YASMIN [Suspect]
  2. YASMIN [Suspect]
     Indication: MENOPAUSE
     Dosage: UNK
     Dates: start: 20090701, end: 20090701
  3. DROSPIRENONE AND ETHINYL ESTRADIOL [Suspect]
     Indication: MENOPAUSE
     Dosage: UNK
     Dates: start: 20090701, end: 20091101
  4. AMOX/K CLAV [Concomitant]
     Dosage: UNK
     Dates: start: 20081126, end: 20091007
  5. GLUCOSAMINE [Concomitant]
     Dosage: UNK UNK, QD
  6. YAZ [Suspect]
     Indication: MENOPAUSE
     Dosage: UNK
     Dates: start: 20090601, end: 20090701
  7. TAMIFLU [Concomitant]
     Dosage: UNK
     Dates: start: 20091016
  8. YAZ [Suspect]
  9. DROSPIRENONE AND ETHINYL ESTRADIOL [Suspect]
  10. MAXAIR [Concomitant]
     Dosage: UNK
     Dates: start: 20091007
  11. ALEVE [Concomitant]
     Indication: ANALGESIC THERAPY
     Dosage: UNK UNK, PRN
  12. VITAMIN TAB [Concomitant]
     Dosage: UNK UNK, QD
  13. FLAXSEED OIL [Concomitant]
     Dosage: UNK UNK, QD

REACTIONS (5)
  - OEDEMA PERIPHERAL [None]
  - PAIN [None]
  - PAIN IN EXTREMITY [None]
  - DEEP VEIN THROMBOSIS [None]
  - EMOTIONAL DISTRESS [None]
